FAERS Safety Report 5084437-6 (Version None)
Quarter: 2006Q3

REPORT INFORMATION
  Report Type: 
  Country: None (occurrence: None)
  Receive Date: 20060821
  Receipt Date: 20060809
  Transmission Date: 20061208
  Serious: Yes (Hospitalization)
  Sender: FDA-Public Use
  Company Number: FR-GLAXOSMITHKLINE-B0433975A

PATIENT
  Age: 20 Year
  Sex: Female

DRUGS (3)
  1. SERETIDE [Suspect]
     Indication: ASTHMA
     Route: 055
     Dates: end: 20060721
  2. BRICANYL [Suspect]
     Indication: ASTHMA
     Route: 055
     Dates: end: 20060721
  3. PERIDYS [Concomitant]
     Indication: NAUSEA
     Dosage: 30MG PER DAY
     Route: 048
     Dates: start: 20060710

REACTIONS (8)
  - BLOOD AMYLASE INCREASED [None]
  - DRUG EXPOSURE DURING PREGNANCY [None]
  - GLYCOSURIA [None]
  - KETONURIA [None]
  - LIPASE INCREASED [None]
  - PAINFUL RESPIRATION [None]
  - PANCREATITIS [None]
  - VOMITING [None]
